FAERS Safety Report 9027453 (Version 2)
Quarter: 2013Q1

REPORT INFORMATION
  Report Type: Spontaneous
  Country: IT (occurrence: IT)
  Receive Date: 20130124
  Receipt Date: 20130129
  Transmission Date: 20140127
  Serious: Yes (Other)
  Sender: FDA-Public Use
  Company Number: IT-BRISTOL-MYERS SQUIBB COMPANY-17288481

PATIENT
  Age: 58 Year
  Sex: Female

DRUGS (1)
  1. COUMADIN [Suspect]
     Indication: CARDIAC OPERATION
     Dates: start: 19811010

REACTIONS (5)
  - Haematoma [Not Recovered/Not Resolved]
  - Embolism [Not Recovered/Not Resolved]
  - Pain [Not Recovered/Not Resolved]
  - Feeling cold [Not Recovered/Not Resolved]
  - Confusional state [Not Recovered/Not Resolved]
